FAERS Safety Report 16487499 (Version 1)
Quarter: 2019Q2

REPORT INFORMATION
  Report Type: Other
  Country: US (occurrence: US)
  Receive Date: 20190627
  Receipt Date: 20190627
  Transmission Date: 20190711
  Serious: Yes (Hospitalization, Other)
  Sender: FDA-Public Use
  Company Number: US-AMAG PHARMACEUTICALS, INC.-AMAG201900615

PATIENT
  Age: 0 Day
  Sex: Female

DRUGS (1)
  1. MAKENA [Suspect]
     Active Substance: HYDROXYPROGESTERONE CAPROATE
     Indication: FOETAL EXPOSURE DURING PREGNANCY
     Dosage: 250 MG/ML, WEEKLY
     Route: 064
     Dates: start: 20181214, end: 20190201

REACTIONS (1)
  - Premature baby [Not Recovered/Not Resolved]

NARRATIVE: CASE EVENT DATE: 20190205
